FAERS Safety Report 10869775 (Version 1)
Quarter: 2015Q1

REPORT INFORMATION
  Report Type: Spontaneous
  Country: GB (occurrence: GB)
  Receive Date: 20150226
  Receipt Date: 20150226
  Transmission Date: 20150721
  Serious: Yes (Death)
  Sender: FDA-Public Use
  Company Number: GB-JNJFOC-20150218816

PATIENT

DRUGS (6)
  1. PARACETAMOL [Suspect]
     Active Substance: ACETAMINOPHEN
     Indication: ARTHRALGIA
     Dosage: ALONE (ARM 2)
     Route: 048
  2. IBUPROFEN. [Suspect]
     Active Substance: IBUPROFEN
     Indication: ARTHRALGIA
     Dosage: PLUS PARACETAMOL 500MG (ARM 3)
     Route: 048
  3. IBUPROFEN. [Suspect]
     Active Substance: IBUPROFEN
     Indication: ARTHRALGIA
     Dosage: ALONE (ARM 1)
     Route: 048
  4. PARACETAMOL [Suspect]
     Active Substance: ACETAMINOPHEN
     Indication: ARTHRALGIA
     Dosage: PLUS IBUPROFEN 400MG (ARM 4)
     Route: 048
  5. PARACETAMOL [Suspect]
     Active Substance: ACETAMINOPHEN
     Indication: ARTHRALGIA
     Dosage: PLUS IBUPROFEN 200MG (ARM 3)
     Route: 048
  6. IBUPROFEN. [Suspect]
     Active Substance: IBUPROFEN
     Indication: ARTHRALGIA
     Dosage: PLUS PARACETAMOL 1000MG (ARM 4)
     Route: 048

REACTIONS (10)
  - Nausea [Unknown]
  - Dyspepsia [Unknown]
  - Aortic aneurysm rupture [Fatal]
  - Platelet count increased [Unknown]
  - Haemoglobin decreased [Unknown]
  - Renal impairment [Unknown]
  - Diarrhoea [Unknown]
  - Angina pectoris [Unknown]
  - Red blood cell count decreased [Unknown]
  - Liver function test abnormal [Unknown]
